FAERS Safety Report 26165908 (Version 1)
Quarter: 2025Q4

REPORT INFORMATION
  Report Type: Spontaneous
  Country: AU (occurrence: AU)
  Receive Date: 20251216
  Receipt Date: 20251216
  Transmission Date: 20260117
  Serious: Yes (Other)
  Sender: MERCK SHARP & DOHME LLC
  Company Number: AU-009507513-2359473

PATIENT
  Age: 35 Year
  Sex: Male

DRUGS (1)
  1. SUVOREXANT [Suspect]
     Active Substance: SUVOREXANT
     Route: 048
     Dates: start: 202512

REACTIONS (5)
  - Nightmare [Unknown]
  - Incorrect dose administered [Unknown]
  - Sleep talking [Unknown]
  - Somnambulism [Unknown]
  - Product prescribing issue [Unknown]

NARRATIVE: CASE EVENT DATE: 20251201
